FAERS Safety Report 8355390-4 (Version None)
Quarter: 2012Q2

REPORT INFORMATION
  Report Type: 
  Country: None (occurrence: None)
  Receive Date: 20120511
  Receipt Date: 20120507
  Transmission Date: 20120825
  Serious: Yes (Death)
  Sender: FDA-Public Use
  Company Number: JP-ALLERGAN-1206710US

PATIENT
  Age: 74 Year
  Sex: Male

DRUGS (11)
  1. ASPIRIN [Concomitant]
     Indication: PRODUCT USED FOR UNKNOWN INDICATION
     Dosage: UNK
     Route: 048
  2. UNKNOWNDRUG [Concomitant]
     Indication: PRODUCT USED FOR UNKNOWN INDICATION
     Route: 048
  3. TAMSULOSIN HYDROCHLORIDE OD [Concomitant]
     Indication: PRODUCT USED FOR UNKNOWN INDICATION
     Route: 048
  4. ECBARL [Concomitant]
     Indication: PRODUCT USED FOR UNKNOWN INDICATION
     Route: 048
  5. BOTOX [Suspect]
     Indication: PRODUCT USED FOR UNKNOWN INDICATION
     Dosage: 220 UNITS UPPER LIMB AND 130UNITS LOWER LIMB, SINGLE
     Route: 030
     Dates: start: 20110928, end: 20110928
  6. UNKNOWNDRUG [Concomitant]
     Route: 048
  7. APHTASOLON [Concomitant]
     Route: 061
  8. UBTEC [Concomitant]
     Indication: PRODUCT USED FOR UNKNOWN INDICATION
     Route: 048
  9. METAHISLON [Concomitant]
     Indication: PRODUCT USED FOR UNKNOWN INDICATION
     Route: 048
  10. BOTOX [Suspect]
     Dosage: 340 UNITS IN UPPERLIMB AND 110UNITS IN LOWER LIMB
     Route: 030
     Dates: start: 20120204, end: 20120204
  11. FAMOSTAGINE-D [Concomitant]
     Indication: PRODUCT USED FOR UNKNOWN INDICATION
     Route: 048

REACTIONS (1)
  - DEATH [None]
